FAERS Safety Report 6537486-2 (Version None)
Quarter: 2010Q1

REPORT INFORMATION
  Report Type: 
  Country: None (occurrence: None)
  Receive Date: 20100110
  Receipt Date: 20100104
  Transmission Date: 20100710
  Serious: Yes (Hospitalization)
  Sender: FDA-Public Use
  Company Number: DSA_42091_2009

PATIENT
  Age: 82 Year
  Sex: Female

DRUGS (8)
  1. BI-TILDIEM     (BI-TILDIEM - DILTIZEM) [Suspect]
     Indication: DRUG USE FOR UNKNOWN INDICATION
     Dosage: (120 MG BID ORAL), (DF ORAL)
     Route: 048
     Dates: start: 20090701, end: 20090901
  2. BI-TILDIEM     (BI-TILDIEM - DILTIZEM) [Suspect]
     Indication: DRUG USE FOR UNKNOWN INDICATION
     Dosage: (120 MG BID ORAL), (DF ORAL)
     Route: 048
     Dates: start: 20091127
  3. ATROVENT [Concomitant]
  4. FLUTICASONE W/SALMETEROL [Concomitant]
  5. SPIRIVA [Concomitant]
  6. COZAAR [Concomitant]
  7. VENTOLIN [Concomitant]
  8. OMEPRAZOLE [Concomitant]

REACTIONS (3)
  - CONSTIPATION [None]
  - INTESTINAL OBSTRUCTION [None]
  - MEDICATION RESIDUE [None]
